FAERS Safety Report 24224099 (Version 3)
Quarter: 2025Q1

REPORT INFORMATION
  Report Type: Spontaneous
  Country: US (occurrence: US)
  Receive Date: 20240819
  Receipt Date: 20250129
  Transmission Date: 20250409
  Serious: Yes (Other)
  Sender: MERCK
  Company Number: US-009507513-2407USA013207

PATIENT
  Sex: Female
  Weight: 56.689 kg

DRUGS (13)
  1. WINREVAIR [Suspect]
     Active Substance: SOTATERCEPT-CSRK
     Indication: Product used for unknown indication
     Dates: start: 202405
  2. TYVASO DPI [Suspect]
     Active Substance: TREPROSTINIL
     Indication: Pulmonary arterial hypertension
     Dosage: 64 MICROGRAM, FOUR TIMES A DAY(QID)
     Dates: start: 20230523
  3. TYVASO DPI [Suspect]
     Active Substance: TREPROSTINIL
     Indication: Pulmonary arterial hypertension
     Dosage: 48 MICROGRAM, FOUR TIMES A DAY (QID)
  4. TYVASO DPI [Suspect]
     Active Substance: TREPROSTINIL
     Dosage: 112 MICROGRAM ( 48 MICROGRAM + 64 MICROGRAM), FOUR TIMES A DAY (QID)
  5. MIRENA [Concomitant]
     Active Substance: LEVONORGESTREL
  6. NITROFURANTOIN [Concomitant]
     Active Substance: NITROFURANTOIN
  7. LEVOCETIRIZINE DIHYDROCHLORIDE [Concomitant]
     Active Substance: LEVOCETIRIZINE DIHYDROCHLORIDE
  8. OPSUMIT [Concomitant]
     Active Substance: MACITENTAN
  9. SILDENAFIL CITRATE [Concomitant]
     Active Substance: SILDENAFIL CITRATE
  10. ALBUTEROL SULFATE [Concomitant]
     Active Substance: ALBUTEROL SULFATE
  11. METOPROLOL SUCCINATE [Concomitant]
     Active Substance: METOPROLOL SUCCINATE
  12. ARNUITY ELLIPTA [Concomitant]
     Active Substance: FLUTICASONE FUROATE
  13. OMEPRAZOLE [Concomitant]
     Active Substance: OMEPRAZOLE

REACTIONS (9)
  - Arrhythmia [Unknown]
  - Vascular skin disorder [Unknown]
  - Weight increased [Unknown]
  - Palpitations [Unknown]
  - Drug effect less than expected [Unknown]
  - Injection site pain [Unknown]
  - Acne [Unknown]
  - Eye irritation [Unknown]
  - Amenorrhoea [Unknown]

NARRATIVE: CASE EVENT DATE: 20240101
